FAERS Safety Report 6768552-4 (Version None)
Quarter: 2010Q2

REPORT INFORMATION
  Report Type: 
  Country: None (occurrence: None)
  Receive Date: 20100614
  Receipt Date: 20100602
  Transmission Date: 20101027
  Serious: Yes (Hospitalization)
  Sender: FDA-Public Use
  Company Number: GB-PFIZER INC-2010069584

PATIENT
  Age: 88 Year
  Sex: Female

DRUGS (5)
  1. BLINDED *MIRTAZAPINE [Suspect]
     Indication: DEPRESSION
     Dosage: UNK
     Dates: start: 20090916
  2. BLINDED *NO SUBJECT DRUG [Suspect]
     Indication: DEPRESSION
     Dosage: UNK
     Dates: start: 20090916
  3. BLINDED *PLACEBO [Suspect]
     Indication: DEPRESSION
     Dosage: UNK
     Dates: start: 20090916
  4. BLINDED MIRTAZAPINE [Suspect]
     Dosage: UNK
     Dates: start: 20090916
  5. BLINDED SERTRALINE HCL [Suspect]
     Indication: DEPRESSION
     Dosage: UNK
     Dates: start: 20090916

REACTIONS (3)
  - DYSPNOEA [None]
  - MYOCARDIAL INFARCTION [None]
  - PULMONARY OEDEMA [None]
